FAERS Safety Report 25564989 (Version 3)
Quarter: 2025Q3

REPORT INFORMATION
  Report Type: Spontaneous
  Country: EU (occurrence: EU)
  Receive Date: 20250716
  Receipt Date: 20250822
  Transmission Date: 20251020
  Serious: Yes (Other)
  Sender: GILEAD
  Company Number: EU-GILEAD-2025-0719907

PATIENT
  Sex: Male

DRUGS (1)
  1. TRUVADA [Suspect]
     Active Substance: EMTRICITABINE\TENOFOVIR DISOPROXIL FUMARATE
     Indication: Prophylaxis against HIV infection
     Route: 065

REACTIONS (12)
  - Sudden hearing loss [Unknown]
  - Tinnitus [Unknown]
  - Insomnia [Unknown]
  - Depression [Unknown]
  - Panic attack [Unknown]
  - Toxicity to various agents [Unknown]
  - Pain [Unknown]
  - Ear injury [Unknown]
  - Inflammation [Unknown]
  - Stress [Unknown]
  - Condition aggravated [Unknown]
  - Oxygen therapy [Unknown]
